FAERS Safety Report 9011187 (Version 1)
Quarter: 2013Q1

REPORT INFORMATION
  Report Type: Other
  Country: CH (occurrence: CH)
  Receive Date: 20130109
  Receipt Date: 20130109
  Transmission Date: 20140127
  Serious: Yes (Other)
  Sender: FDA-Public Use
  Company Number: CH-ACTELION-A-CH2012-77264

PATIENT
  Age: 48 Year
  Sex: Male

DRUGS (5)
  1. TRACLEER [Suspect]
     Indication: PULMONARY ARTERIAL HYPERTENSION
     Dosage: UNK MG, UNK
     Route: 048
  2. RIFAMPICIN [Suspect]
  3. TORSEMIDE [Concomitant]
  4. PERINDOPRIL [Concomitant]
  5. DIGOXIN [Concomitant]

REACTIONS (10)
  - Endocarditis staphylococcal [Unknown]
  - Blood culture positive [Unknown]
  - Pyrexia [Unknown]
  - Pulmonary arterial hypertension [Unknown]
  - Dyspnoea [Unknown]
  - Pulmonary arterial pressure increased [Unknown]
  - Brain natriuretic peptide increased [Unknown]
  - Condition aggravated [Unknown]
  - Drug interaction [Unknown]
  - Drug level decreased [Unknown]
